FAERS Safety Report 10444975 (Version 3)
Quarter: 2014Q4

REPORT INFORMATION
  Report Type: Spontaneous
  Country: JP (occurrence: JP)
  Receive Date: 20140910
  Receipt Date: 20141010
  Transmission Date: 20150528
  Serious: Yes (Life-Threatening, Hospitalization, Other)
  Sender: FDA-Public Use
  Company Number: JP-PFIZER INC-2014250942

PATIENT
  Age: 83 Year
  Sex: Male

DRUGS (10)
  1. MOHRUS [Concomitant]
     Active Substance: KETOPROFEN
     Indication: BACK PAIN
     Dosage: 40 MG, 1X/DAY TAPE (REGIONAL)
     Dates: start: 20140808
  2. CELECOX [Suspect]
     Active Substance: CELECOXIB
     Dosage: 200 MG, 1X/DAY
     Route: 048
     Dates: start: 20140830
  3. MUCOSTA [Suspect]
     Active Substance: REBAMIPIDE
     Indication: BACK PAIN
     Dosage: 100 MG, 2X/DAY
     Route: 048
     Dates: start: 20140808, end: 20140812
  4. CELECOX [Suspect]
     Active Substance: CELECOXIB
     Indication: BACK PAIN
     Dosage: UNK
     Route: 048
     Dates: start: 201308
  5. VITAMINS NOS [Suspect]
     Active Substance: VITAMINS
     Dosage: UNK UNK, UNKNOWN FREQ
     Route: 048
     Dates: start: 20140830
  6. LYRICA [Suspect]
     Active Substance: PREGABALIN
     Dosage: UNK UNKNOWN FREQ
     Route: 048
     Dates: start: 20140830
  7. CELECOX [Suspect]
     Active Substance: CELECOXIB
     Dosage: 100 MG, 2X/DAY
     Route: 048
     Dates: start: 20140808, end: 20140812
  8. LYRICA [Suspect]
     Active Substance: PREGABALIN
     Indication: BACK PAIN
     Dosage: 25 MG, 1X/DAY
     Route: 048
     Dates: start: 20140808, end: 20140812
  9. VITAMINS NOS [Suspect]
     Active Substance: VITAMINS
     Indication: BACK PAIN
     Dosage: 5 UG, 3X/DAY
     Route: 048
     Dates: start: 20140808, end: 20140812
  10. MUCOSTA [Suspect]
     Active Substance: REBAMIPIDE
     Dosage: UNK UNKNOWN FREQ
     Route: 048
     Dates: start: 20140830

REACTIONS (4)
  - Nausea [Unknown]
  - Drug eruption [Recovered/Resolved]
  - Anaphylactic shock [Recovered/Resolved]
  - Loss of consciousness [Recovered/Resolved]

NARRATIVE: CASE EVENT DATE: 20140812
